FAERS Safety Report 26074654 (Version 1)
Quarter: 2025Q4

REPORT INFORMATION
  Report Type: Spontaneous
  Country: EU (occurrence: EU)
  Receive Date: 20251121
  Receipt Date: 20251121
  Transmission Date: 20260118
  Serious: Yes (Other)
  Sender: RANBAXY
  Company Number: EU-AFSSAPS-PP2025000889

PATIENT
  Age: 70 Year
  Sex: Male
  Weight: 75 kg

DRUGS (4)
  1. PANTOPRAZOLE [Suspect]
     Active Substance: PANTOPRAZOLE
     Indication: Drug reaction with eosinophilia and systemic symptoms
     Dosage: 40 MILLIGRAM, 2/D
     Route: 042
     Dates: start: 20250413, end: 20250426
  2. CEFEPIME [Suspect]
     Active Substance: CEFEPIME HYDROCHLORIDE
     Indication: Abdominal infection
     Dosage: 3/D
     Route: 042
     Dates: start: 20250402, end: 20250426
  3. FLAGYL [Suspect]
     Active Substance: METRONIDAZOLE\METRONIDAZOLE HYDROCHLORIDE
     Indication: Abdominal infection
     Dosage: 500 MILLIGRAM, 3/D
     Route: 042
     Dates: start: 20250419, end: 20250426
  4. FLUCONAZOLE [Suspect]
     Active Substance: FLUCONAZOLE
     Indication: Abdominal infection
     Dosage: 400 MILLIGRAM, 1/D
     Route: 042
     Dates: start: 20250402, end: 20250418

REACTIONS (1)
  - Drug reaction with eosinophilia and systemic symptoms [Recovering/Resolving]

NARRATIVE: CASE EVENT DATE: 20250423
